FAERS Safety Report 11378000 (Version 2)
Quarter: 2015Q3

REPORT INFORMATION
  Report Type: Spontaneous
  Country: US (occurrence: US)
  Receive Date: 20150811
  Receipt Date: 20150903
  Transmission Date: 20151125
  Serious: No
  Sender: FDA-Public Use
  Company Number: US-ELI_LILLY_AND_COMPANY-US200912003919

PATIENT
  Age: 65 Year
  Sex: Male

DRUGS (4)
  1. HUMALOG [Suspect]
     Active Substance: INSULIN LISPRO
     Dosage: UNK, UNK
  2. HUMULIN N [Suspect]
     Active Substance: INSULIN HUMAN
     Dosage: UNK, UNK
  3. HUMULIN N [Suspect]
     Active Substance: INSULIN HUMAN
  4. HUMULIN N [Suspect]
     Active Substance: INSULIN HUMAN

REACTIONS (3)
  - Colitis [Recovering/Resolving]
  - Blood glucose increased [Recovering/Resolving]
  - Underdose [Unknown]

NARRATIVE: CASE EVENT DATE: 20090830
